FAERS Safety Report 4661058-8 (Version None)
Quarter: 2005Q2

REPORT INFORMATION
  Report Type: 
  Country: None (occurrence: None)
  Receive Date: 20050511
  Receipt Date: 20050426
  Transmission Date: 20051028
  Serious: Yes (Other)
  Sender: FDA-Public Use
  Company Number: 2005-0008286

PATIENT
  Age: 7 Year
  Sex: Male
  Weight: 27.3 kg

DRUGS (3)
  1. VIREAD [Suspect]
     Indication: HIV INFECTION
     Dosage: 300 MG, 1 IN 1 D, ORAL
     Route: 048
     Dates: start: 20030124
  2. VIDEX [Suspect]
     Indication: HIV INFECTION
     Dosage: SEE IMAGE
     Route: 048
     Dates: start: 20030124
  3. ZIAGEN [Suspect]
     Indication: HIV INFECTION
     Dosage: 300 MG, 1 IN 1 D, ORAL
     Route: 048
     Dates: start: 20030124

REACTIONS (4)
  - BLOOD IRON DECREASED [None]
  - BONE MARROW DEPRESSION [None]
  - BONE MARROW NECROSIS [None]
  - CD4 LYMPHOCYTES DECREASED [None]
